APPROVED DRUG PRODUCT: FLUDARABINE PHOSPHATE
Active Ingredient: FLUDARABINE PHOSPHATE
Strength: 50MG/VIAL
Dosage Form/Route: INJECTABLE;INJECTION
Application: A076349 | Product #001 | TE Code: AP
Applicant: HIKMA PHARMACEUTICALS USA INC
Approved: Aug 28, 2003 | RLD: No | RS: No | Type: RX